FAERS Safety Report 14274866 (Version 1)
Quarter: 2017Q4

REPORT INFORMATION
  Report Type: Spontaneous
  Country: US (occurrence: US)
  Receive Date: 20171212
  Receipt Date: 20171212
  Transmission Date: 20180321
  Serious: No
  Sender: FDA-Public Use
  Company Number: US-BION-005010

PATIENT
  Sex: Female
  Weight: 88.45 kg

DRUGS (11)
  1. METFORMIN [Concomitant]
     Active Substance: METFORMIN HYDROCHLORIDE
     Dosage: 500 MG ONCE A DAY WITH DINNER
  2. SIMVASTATIN. [Concomitant]
     Active Substance: SIMVASTATIN
     Dosage: 40 MG IN THE EVENING
  3. FISH OIL [Concomitant]
     Active Substance: FISH OIL
  4. FOLIC ACID. [Concomitant]
     Active Substance: FOLIC ACID
  5. TOFACITINIB [Suspect]
     Active Substance: TOFACITINIB
     Indication: RHEUMATOID ARTHRITIS
     Dosage: 1 DF BY MOUTH QD
  6. OMEPRAZOLE. [Concomitant]
     Active Substance: OMEPRAZOLE
     Dosage: 20 MG ONCE A DAY
  7. TRAMADOL. [Concomitant]
     Active Substance: TRAMADOL
  8. ERGOCALCIFEROL. [Suspect]
     Active Substance: ERGOCALCIFEROL
     Indication: PRODUCT USED FOR UNKNOWN INDICATION
  9. LISINOPRIL. [Concomitant]
     Active Substance: LISINOPRIL
     Dosage: 5 MG, AT NIGHT
  10. HYDROCHLOROTHIAZIDE. [Concomitant]
     Active Substance: HYDROCHLOROTHIAZIDE
     Dosage: 25 MG ONCE A DAY, IN THE MORNING
  11. LEXAPRO [Concomitant]
     Active Substance: ESCITALOPRAM OXALATE
     Dosage: 20 MG ONCE A DAY, AT NIGHT

REACTIONS (1)
  - Drug ineffective [Not Recovered/Not Resolved]
